FAERS Safety Report 13273273 (Version 1)
Quarter: 2017Q1

REPORT INFORMATION
  Report Type: Spontaneous
  Country: US (occurrence: US)
  Receive Date: 20170227
  Receipt Date: 20170227
  Transmission Date: 20170428
  Serious: No
  Sender: FDA-Public Use
  Company Number: None

PATIENT
  Age: 42 Year
  Sex: Female
  Weight: 65.25 kg

DRUGS (8)
  1. WOMENS DAILY MULTIPLE [Concomitant]
  2. LEVOTHYROXINE. [Concomitant]
     Active Substance: LEVOTHYROXINE
  3. ZOLOFT [Concomitant]
     Active Substance: SERTRALINE HYDROCHLORIDE
  4. MAGNESIUM [Concomitant]
     Active Substance: MAGNESIUM
  5. GABAPENTIN 100MG CAPSULES [Suspect]
     Active Substance: GABAPENTIN
     Indication: ROTATOR CUFF SYNDROME
     Dosage: ?          QUANTITY:1 CAPSULE(S);EVERY 8 HOURS ORAL?
     Route: 048
     Dates: start: 20170224
  6. FISH OIL [Concomitant]
     Active Substance: FISH OIL
  7. CALCIUM [Concomitant]
     Active Substance: CALCIUM
  8. ZINC. [Concomitant]
     Active Substance: ZINC

REACTIONS (1)
  - Tinnitus [None]

NARRATIVE: CASE EVENT DATE: 20170224
